APPROVED DRUG PRODUCT: FOLIC ACID
Active Ingredient: FOLIC ACID
Strength: 1MG
Dosage Form/Route: TABLET;ORAL
Application: A040625 | Product #001 | TE Code: AA
Applicant: AMNEAL PHARMACEUTICAL
Approved: Jul 21, 2005 | RLD: No | RS: Yes | Type: RX